FAERS Safety Report 8999923 (Version 1)
Quarter: 2013Q1

REPORT INFORMATION
  Report Type: Spontaneous
  Country: DE (occurrence: DE)
  Receive Date: 20130102
  Receipt Date: 20130102
  Transmission Date: 20140127
  Serious: Yes (Death)
  Sender: FDA-Public Use
  Company Number: DE-PFIZER INC-2012330946

PATIENT
  Age: 23 Year
  Sex: Female

DRUGS (2)
  1. TIGECYCLINE [Suspect]
  2. CIPROFLOXACIN [Suspect]

REACTIONS (2)
  - Coma hepatic [Fatal]
  - Multi-organ failure [Fatal]
